FAERS Safety Report 16992894 (Version 2)
Quarter: 2019Q4

REPORT INFORMATION
  Report Type: Spontaneous
  Country: TR (occurrence: TR)
  Receive Date: 20191105
  Receipt Date: 20191120
  Transmission Date: 20200122
  Serious: Yes (Other)
  Sender: FDA-Public Use
  Company Number: TR-ROCHE-2461574

PATIENT
  Age: 59 Year
  Sex: Male
  Weight: 95 kg

DRUGS (4)
  1. ACTILYSE [Suspect]
     Active Substance: ALTEPLASE
     Indication: CEREBROVASCULAR ACCIDENT
     Dosage: ONE IN ONCE
     Route: 042
     Dates: start: 20191010, end: 20191010
  2. PROGAS [Concomitant]
  3. CAPRIL [CAPTOPRIL] [Concomitant]
  4. PERLINGANIT [Concomitant]
     Active Substance: NITROGLYCERIN

REACTIONS (2)
  - Aphasia [Recovered/Resolved]
  - Swollen tongue [Recovered/Resolved]

NARRATIVE: CASE EVENT DATE: 20191010
